FAERS Safety Report 8322763-5 (Version None)
Quarter: 2012Q2

REPORT INFORMATION
  Report Type: 
  Country: None (occurrence: None)
  Receive Date: 20120430
  Receipt Date: 20110407
  Transmission Date: 20120825
  Serious: Yes (Other)
  Sender: FDA-Public Use
  Company Number: US-TEVA-2009009647

PATIENT
  Sex: Male

DRUGS (1)
  1. PROVIGIL [Suspect]
     Route: 048

REACTIONS (1)
  - DYSPNOEA [None]
